FAERS Safety Report 5036117-0 (Version None)
Quarter: 2006Q2

REPORT INFORMATION
  Report Type: 
  Country: None (occurrence: None)
  Receive Date: 20060601
  Receipt Date: 20060420
  Transmission Date: 20061013
  Serious: No
  Sender: FDA-Public Use
  Company Number: US200604003416

PATIENT
  Sex: Male

DRUGS (4)
  1. CYMBALTA [Suspect]
     Indication: PAIN
     Dosage: SEE IMAGE
     Dates: start: 20060201
  2. CYMBALTA [Suspect]
     Indication: PAIN
     Dosage: SEE IMAGE
  3. DURAGESIC-100 [Concomitant]
  4. NORCO [Concomitant]

REACTIONS (3)
  - ABNORMAL DREAMS [None]
  - HYPERHIDROSIS [None]
  - NAUSEA [None]
